FAERS Safety Report 11327923 (Version 2)
Quarter: 2015Q3

REPORT INFORMATION
  Report Type: Other
  Country: CA (occurrence: CA)
  Receive Date: 20150731
  Receipt Date: 20150904
  Transmission Date: 20151125
  Serious: Yes (Other)
  Sender: FDA-Public Use
  Company Number: CA-APOTEX-2015AP010806

PATIENT

DRUGS (1)
  1. APO-LEVOCARB [Suspect]
     Active Substance: CARBIDOPA\LEVODOPA
     Indication: DYSTONIA
     Dosage: 0.5 DF, 3 EVERY 1 DAY
     Route: 048

REACTIONS (9)
  - Sensation of foreign body [Recovered/Resolved]
  - Affect lability [Recovered/Resolved]
  - Motor dysfunction [Recovered/Resolved]
  - Product quality issue [Recovered/Resolved]
  - Therapeutic response decreased [Recovered/Resolved]
  - Balance disorder [Recovered/Resolved]
  - Injury [Recovered/Resolved]
  - Pain [Recovered/Resolved]
  - Gait disturbance [Recovered/Resolved]
